FAERS Safety Report 12548316 (Version 1)
Quarter: 2016Q3

REPORT INFORMATION
  Report Type: Spontaneous
  Country: US (occurrence: None)
  Receive Date: 20160711
  Receipt Date: 20160711
  Transmission Date: 20161109
  Serious: No
  Sender: FDA-Public Use
  Company Number: None

PATIENT
  Sex: Male

DRUGS (4)
  1. INVOKANA [Suspect]
     Active Substance: CANAGLIFLOZIN
  2. METFORMIN [Suspect]
     Active Substance: METFORMIN HYDROCHLORIDE
  3. GLIPIZIDE. [Suspect]
     Active Substance: GLIPIZIDE
  4. TRADJENTA [Suspect]
     Active Substance: LINAGLIPTIN

REACTIONS (2)
  - Weight increased [None]
  - Hypersensitivity [None]
